FAERS Safety Report 5104588-7 (Version None)
Quarter: 2006Q3

REPORT INFORMATION
  Report Type: 
  Country: None (occurrence: None)
  Receive Date: 20060914
  Receipt Date: 20051110
  Transmission Date: 20061208
  Serious: No
  Sender: FDA-Public Use
  Company Number: US-BRISTOL-MYERS SQUIBB COMPANY-13175682

PATIENT
  Sex: Female

DRUGS (12)
  1. BUSPAR [Suspect]
  2. FLUVASTATIN SODIUM [Concomitant]
  3. AMLODIPINE BESYLATE+BENAZEPRIL [Concomitant]
  4. AZATHIOPRINE [Concomitant]
  5. ESCITALOPRAM [Concomitant]
  6. SODIUM CHLORIDE [Concomitant]
  7. PANTOPRAZOLE SODIUM [Concomitant]
  8. METFORMIN HYDROCHLORIDE [Concomitant]
  9. GLIMEPIRIDE [Concomitant]
  10. LORAZEPAM [Concomitant]
  11. LOPRESSOR [Concomitant]
  12. BENICAR [Concomitant]

REACTIONS (3)
  - DIARRHOEA [None]
  - DRY MOUTH [None]
  - TARDIVE DYSKINESIA [None]
